FAERS Safety Report 7991301-9 (Version None)
Quarter: 2011Q4

REPORT INFORMATION
  Report Type: 
  Country: None (occurrence: None)
  Receive Date: 20111219
  Receipt Date: 20111212
  Transmission Date: 20120403
  Serious: Yes (Other)
  Sender: FDA-Public Use
  Company Number: US-ELI_LILLY_AND_COMPANY-US201107002488

PATIENT
  Sex: Female
  Weight: 103.86 kg

DRUGS (12)
  1. IRON [Concomitant]
  2. ATACAND [Concomitant]
     Dosage: 8 MG, QD
  3. FOSAMAX [Concomitant]
     Dosage: 70 MG, UNK
  4. ATENOLOL [Concomitant]
     Dosage: 25 MG, QD
  5. NEURONTIN [Concomitant]
     Dosage: 300 MG, TID
  6. LASIX [Concomitant]
     Dosage: 40 MG, QD
  7. BYETTA [Suspect]
     Dosage: UNK
     Dates: start: 20080201, end: 20090501
  8. DRUG USED IN DIABETES [Concomitant]
     Route: 048
  9. POTASSIUM CHLORIDE [Concomitant]
     Dosage: 10 MEQ, QD
  10. BYETTA [Suspect]
     Dosage: 5 UG, UNKNOWN
     Dates: start: 20090107, end: 20090107
  11. TYLENOL                                 /SCH/ [Concomitant]
  12. BYETTA [Suspect]
     Dosage: UNK
     Dates: start: 20070701, end: 20091201

REACTIONS (3)
  - RENAL FAILURE CHRONIC [None]
  - PANCREATITIS [None]
  - PAIN [None]
